FAERS Safety Report 13557673 (Version 1)
Quarter: 2017Q2

REPORT INFORMATION
  Report Type: Spontaneous
  Country: AU (occurrence: US)
  Receive Date: 20170518
  Receipt Date: 20170518
  Transmission Date: 20170830
  Serious: Yes (Life-Threatening, Hospitalization, Other)
  Sender: FDA-Public Use
  Company Number: AU-AMNEAL PHARMACEUTICALS-2017AMN00615

PATIENT
  Age: 6 Month
  Sex: Female

DRUGS (1)
  1. ENTECAVIR. [Suspect]
     Active Substance: ENTECAVIR
     Indication: ANTIVIRAL TREATMENT
     Route: 064

REACTIONS (3)
  - Pseudocyst [Recovered/Resolved]
  - Meconium peritonitis [Recovered/Resolved]
  - Ileal perforation [Recovered/Resolved]
